FAERS Safety Report 8534390-5 (Version None)
Quarter: 2012Q3

REPORT INFORMATION
  Report Type: 
  Country: None (occurrence: None)
  Receive Date: 20120724
  Receipt Date: 20120723
  Transmission Date: 20120928
  Serious: Yes (Death, Life-Threatening, Hospitalization)
  Sender: FDA-Public Use
  Company Number: PHHY2012AU057054

PATIENT
  Sex: Male

DRUGS (11)
  1. CLOZARIL [Suspect]
     Indication: SCHIZOPHRENIA
     Dosage: 150 MG, UNK (50 MG MANE, 100 MG NOCTE)
     Route: 048
     Dates: start: 20100323, end: 20120703
  2. MOVIPREP [Concomitant]
     Dosage: UNK UKN, UNK
  3. PRAZOSIN [Concomitant]
     Indication: HYPERTENSION
     Dosage: 1 MG, BID (BI-DAILY)
     Route: 048
  4. PERINDOPRIL ERBUMINE [Concomitant]
     Indication: HYPERTENSION
     Dosage: 2 MG, MANE
     Route: 048
     Dates: start: 20100101, end: 20120701
  5. VALPROATE SODIUM [Concomitant]
     Indication: SCHIZOPHRENIA
     Dosage: 200 MG, BID (BI-DAILY)
     Route: 048
     Dates: start: 20100101, end: 20120701
  6. COLOXYL [Concomitant]
  7. DULCOLAX [Concomitant]
     Dosage: UNK UKN, UNK
  8. ATORVASTATIN [Concomitant]
     Indication: HYPERLIPIDAEMIA
     Dosage: 20 MG, NOCTE
     Route: 048
     Dates: start: 20080101, end: 20120701
  9. ACETAMINOPHEN [Concomitant]
     Dosage: 1 G, QID
     Route: 048
  10. OMEPRAZOLE [Concomitant]
     Indication: GASTROOESOPHAGEAL REFLUX DISEASE
     Dosage: UNK UKN, UNK
     Route: 048
     Dates: start: 20100101, end: 20120701
  11. CLOPIDOGREL [Concomitant]
     Indication: CEREBROVASCULAR ACCIDENT
     Dosage: 75 MG, MANE
     Route: 048
     Dates: start: 20100101, end: 20120701

REACTIONS (18)
  - OPPORTUNISTIC INFECTION [None]
  - MALAISE [None]
  - PRURITUS [None]
  - SEPSIS [None]
  - METASTATIC NEOPLASM [None]
  - NEUTROPENIA [None]
  - HEPATITIS [None]
  - LIVER FUNCTION TEST ABNORMAL [None]
  - METASTASES TO BONE MARROW [None]
  - LUNG INFECTION [None]
  - FUNGAL INFECTION [None]
  - BLOOD LACTATE DEHYDROGENASE INCREASED [None]
  - ANAEMIA [None]
  - JAUNDICE [None]
  - PANCYTOPENIA [None]
  - LEUKOPENIA [None]
  - THROMBOCYTOPENIA [None]
  - BLOOD UREA INCREASED [None]
